FAERS Safety Report 5079893-3 (Version None)
Quarter: 2006Q3

REPORT INFORMATION
  Report Type: 
  Country: None (occurrence: None)
  Receive Date: 20060810
  Receipt Date: 20060801
  Transmission Date: 20061208
  Serious: Yes (Hospitalization, Other)
  Sender: FDA-Public Use
  Company Number: 2006-07-1710

PATIENT
  Age: 69 Year
  Sex: Female
  Weight: 51 kg

DRUGS (6)
  1. PEG-INTRON [Suspect]
     Indication: HEPATITIS C
     Dosage: 80 MCG QW SUBCUTANEOUS
     Route: 058
     Dates: start: 20050902, end: 20051007
  2. REBETOL [Suspect]
     Indication: HEPATITIS C
     Dosage: 600 MG ORAL
     Route: 048
     Dates: start: 20050902, end: 20051007
  3. URSO TABLETS [Concomitant]
  4. URALYT TABLETS [Concomitant]
  5. FLOMOX (CEFCAPENE PIVOXIL HCL) TABLETS [Concomitant]
  6. REBAMIPIDE TABLETS [Concomitant]

REACTIONS (1)
  - PSOAS ABSCESS [None]
